FAERS Safety Report 5608835-4 (Version None)
Quarter: 2008Q1

REPORT INFORMATION
  Report Type: 
  Country: None (occurrence: None)
  Receive Date: 20080128
  Receipt Date: 20080128
  Transmission Date: 20080703
  Serious: No
  Sender: FDA-Public Use
  Company Number: None

PATIENT
  Sex: Male
  Weight: 95.709 kg

DRUGS (2)
  1. COMBIVENT [Suspect]
     Indication: ASTHMA
     Dosage: 200 ACTUATIONS 14.7 2 ACTUATIONSEVERY OTHER
     Route: 050
  2. COMBIVENT [Suspect]
     Indication: CHRONIC OBSTRUCTIVE PULMONARY DISEASE
     Dosage: 200 ACTUATIONS 14.7 2 ACTUATIONSEVERY OTHER
     Route: 050

REACTIONS (1)
  - PHARMACEUTICAL PRODUCT COMPLAINT [None]
